FAERS Safety Report 4328296-5 (Version None)
Quarter: 2004Q1

REPORT INFORMATION
  Report Type: 
  Country: None (occurrence: None)
  Receive Date: 20040325
  Receipt Date: 20031209
  Transmission Date: 20041129
  Serious: No
  Sender: FDA-Public Use
  Company Number: USA-2003-0011895

PATIENT
  Sex: Female

DRUGS (1)
  1. SPECTRACEF TABLETS 200 MG (CEFDITOREN PIVOXIL) [Suspect]
     Indication: INFECTION
     Dosage: 200 MG, BID

REACTIONS (1)
  - DIARRHOEA [None]
